FAERS Safety Report 8400815-9 (Version None)
Quarter: 2012Q2

REPORT INFORMATION
  Report Type: 
  Country: None (occurrence: None)
  Receive Date: 20120531
  Receipt Date: 20120524
  Transmission Date: 20120825
  Serious: Yes (Hospitalization, Other)
  Sender: FDA-Public Use
  Company Number: US-RB-038711-12

PATIENT
  Age: 48 Year
  Sex: Female

DRUGS (8)
  1. SUBOXONE [Suspect]
     Indication: DRUG DEPENDENCE
     Dosage: ONE 8 MG TABLET ONLY
     Route: 065
     Dates: start: 20101201, end: 20101201
  2. SUBOXONE [Suspect]
     Indication: PRODUCT USED FOR UNKNOWN INDICATION
     Dosage: DOSING DETAILS UNKNOWN
     Route: 060
     Dates: start: 20110101
  3. KLONOPIN [Suspect]
     Dosage: TAPERING DOSE
     Route: 065
     Dates: start: 20100101
  4. TOPAMAX [Concomitant]
     Indication: NIGHTMARE
     Dosage: DOSING DETAILS UNKNOWN
     Route: 065
  5. CELEXA [Concomitant]
     Indication: DEPRESSION
     Route: 065
  6. ALBUTEROL [Concomitant]
     Indication: CHRONIC OBSTRUCTIVE PULMONARY DISEASE
     Dosage: DOSING DETAILS UNKNOWN
     Route: 065
  7. SEROQUEL [Concomitant]
     Indication: SLEEP DISORDER
     Route: 065
  8. KLONOPIN [Suspect]
     Indication: ANXIETY
     Dosage: DOSING DETAILS UNKNOWN
     Route: 065
     Dates: end: 20100101

REACTIONS (11)
  - PYREXIA [None]
  - SLEEP DISORDER [None]
  - CHRONIC OBSTRUCTIVE PULMONARY DISEASE [None]
  - VOMITING [None]
  - COMA [None]
  - SUICIDAL IDEATION [None]
  - FEELING HOT [None]
  - DYSPNOEA [None]
  - HAEMATEMESIS [None]
  - CONDITION AGGRAVATED [None]
  - THERAPEUTIC RESPONSE UNEXPECTED [None]
